FAERS Safety Report 17686565 (Version 1)
Quarter: 2020Q2

REPORT INFORMATION
  Report Type: Spontaneous
  Country: IT (occurrence: IT)
  Receive Date: 20200420
  Receipt Date: 20200420
  Transmission Date: 20200714
  Serious: Yes (Hospitalization)
  Sender: FDA-Public Use
  Company Number: IT-AUROBINDO-AUR-APL-2020-019481

PATIENT
  Age: 58 Year
  Sex: Male

DRUGS (3)
  1. ERBITUX [Suspect]
     Active Substance: CETUXIMAB
     Indication: NEOPLASM MALIGNANT
     Dosage: 340 MILLIGRAM, EVERY WEEK
     Route: 042
     Dates: start: 20191220
  2. CARBOPLATIN. [Suspect]
     Active Substance: CARBOPLATIN
     Indication: NEOPLASM MALIGNANT
     Dosage: 200 MILLIGRAM,1CYCLICAL
     Route: 042
     Dates: start: 20191220
  3. PACLITAXEL. [Suspect]
     Active Substance: PACLITAXEL
     Indication: NEOPLASM MALIGNANT
     Dosage: 130 MILLIGRAM,1CYCLICAL
     Route: 042
     Dates: start: 20191220

REACTIONS (7)
  - Neutrophilia [Recovering/Resolving]
  - Lymphopenia [Recovering/Resolving]
  - Injury [Recovering/Resolving]
  - Pustule [Recovering/Resolving]
  - Mucosal inflammation [Recovering/Resolving]
  - Haemoglobin decreased [Recovering/Resolving]
  - Monocyte count decreased [Recovering/Resolving]

NARRATIVE: CASE EVENT DATE: 20200118
